FAERS Safety Report 22642100 (Version 1)
Quarter: 2023Q2

REPORT INFORMATION
  Report Type: Spontaneous
  Country: CN (occurrence: CN)
  Receive Date: 20230626
  Receipt Date: 20230626
  Transmission Date: 20230721
  Serious: Yes (Hospitalization, Other)
  Sender: FDA-Public Use
  Company Number: CN-AMGEN-CHNSP2023108427

PATIENT
  Age: 60 Year
  Sex: Male
  Weight: 50 kg

DRUGS (5)
  1. KYPROLIS [Suspect]
     Active Substance: CARFILZOMIB
     Indication: Plasma cell myeloma
     Dosage: 40 MILLIGRAM, QD
     Route: 042
     Dates: start: 20230430, end: 20230501
  2. KYPROLIS [Suspect]
     Active Substance: CARFILZOMIB
     Indication: Chemotherapy
  3. ZOLEDRONIC ACID [Suspect]
     Active Substance: ZOLEDRONIC ACID
     Indication: Chemotherapy
     Dosage: 4 MILLIGRAM, QD
     Route: 042
     Dates: start: 20230426, end: 20230426
  4. DARATUMUMAB [Suspect]
     Active Substance: DARATUMUMAB
     Indication: Chemotherapy
     Dosage: 400 MILLIGRAM, QD
     Route: 042
     Dates: start: 20230428, end: 20230429
  5. DARATUMUMAB [Suspect]
     Active Substance: DARATUMUMAB
     Dosage: 400 MILLIGRAM
     Route: 042
     Dates: start: 20230505, end: 20230506

REACTIONS (1)
  - Myelosuppression [Recovering/Resolving]

NARRATIVE: CASE EVENT DATE: 20230513
